FAERS Safety Report 5028635-6 (Version None)
Quarter: 2006Q2

REPORT INFORMATION
  Report Type: 
  Country: None (occurrence: None)
  Receive Date: 20060619
  Receipt Date: 20051011
  Transmission Date: 20061013
  Serious: Yes (Other)
  Sender: FDA-Public Use
  Company Number: PHBS2005JP14977

PATIENT
  Age: 81 Year
  Sex: Female

DRUGS (3)
  1. AREDIA [Suspect]
     Indication: METASTASES TO BONE
     Dosage: 45 MG
     Route: 042
     Dates: start: 20031224, end: 20050803
  2. AROMASIN [Concomitant]
     Dosage: 25 MG/D
     Route: 065
  3. ALPRAZOLAM [Concomitant]
     Route: 065

REACTIONS (16)
  - BONE DEBRIDEMENT [None]
  - BONE DISORDER [None]
  - BONE FORMATION INCREASED [None]
  - DENTURE WEARER [None]
  - MALIGNANT NEOPLASM PROGRESSION [None]
  - MEMORY IMPAIRMENT [None]
  - MOUTH HAEMORRHAGE [None]
  - MOUTH ULCERATION [None]
  - OSTEITIS [None]
  - OSTEOSCLEROSIS [None]
  - PAIN IN JAW [None]
  - PRIMARY SEQUESTRUM [None]
  - PURULENT DISCHARGE [None]
  - SINUSITIS [None]
  - STOMATITIS [None]
  - SWELLING [None]
